FAERS Safety Report 24248493 (Version 4)
Quarter: 2024Q4

REPORT INFORMATION
  Report Type: Spontaneous
  Country: US (occurrence: US)
  Receive Date: 20240826
  Receipt Date: 20241115
  Transmission Date: 20250115
  Serious: No
  Sender: PFIZER
  Company Number: US-PFIZER INC-202400241203

PATIENT
  Age: 12 Year
  Sex: Male
  Weight: 42.18 kg

DRUGS (1)
  1. GENOTROPIN [Suspect]
     Active Substance: SOMATROPIN
     Indication: Growth hormone deficiency
     Dosage: 1.6MG, SIX DAYS PER WEEK
     Dates: start: 202310

REACTIONS (5)
  - Drug dose omission by device [Unknown]
  - Device breakage [Unknown]
  - Device issue [Unknown]
  - Poor quality device used [Unknown]
  - Device use error [Unknown]

NARRATIVE: CASE EVENT DATE: 20240815
